FAERS Safety Report 16283979 (Version 1)
Quarter: 2019Q2

REPORT INFORMATION
  Report Type: Spontaneous
  Country: US (occurrence: US)
  Receive Date: 20190507
  Receipt Date: 20190507
  Transmission Date: 20190711
  Serious: Yes (Hospitalization, Other)
  Sender: FDA-Public Use
  Company Number: US-ALLERGAN-1918771US

PATIENT
  Sex: Female

DRUGS (1)
  1. KYBELLA [Suspect]
     Active Substance: DEOXYCHOLIC ACID
     Indication: PRODUCT USED FOR UNKNOWN INDICATION
     Dosage: UNK, SINGLE
     Dates: start: 20180505, end: 20180505

REACTIONS (13)
  - Injection site inflammation [Unknown]
  - Pain in extremity [Unknown]
  - Scar [Unknown]
  - Wrong technique in product usage process [Unknown]
  - Product colour issue [Unknown]
  - Anxiety [Unknown]
  - Off label use [Unknown]
  - Muscular weakness [Unknown]
  - Joint swelling [Unknown]
  - Injection site necrosis [Unknown]
  - Injection site infection [Unknown]
  - Injection site exfoliation [Unknown]
  - Injection site erythema [Unknown]

NARRATIVE: CASE EVENT DATE: 20190505
